FAERS Safety Report 20561255 (Version 1)
Quarter: 2022Q1

REPORT INFORMATION
  Report Type: Spontaneous
  Country: US (occurrence: US)
  Receive Date: 20220307
  Receipt Date: 20220307
  Transmission Date: 20220424
  Serious: No
  Sender: FDA-Public Use
  Company Number: US-SANOFI-00996488

PATIENT
  Age: 33 Year
  Sex: Female

DRUGS (1)
  1. DUPIXENT [Suspect]
     Active Substance: DUPILUMAB
     Indication: Asthma
     Dosage: FROM JUNE 2021 (EXACT DATE UNKNOWN) UNTIL DECEMBER 2021 (EXACT DATE UNKNOWN).
     Dates: start: 202106, end: 202112

REACTIONS (1)
  - Eczema [Recovered/Resolved]
